FAERS Safety Report 6295114-8 (Version None)
Quarter: 2009Q3

REPORT INFORMATION
  Report Type: 
  Country: None (occurrence: None)
  Receive Date: 20090730
  Receipt Date: 20090720
  Transmission Date: 20100115
  Serious: Yes (Hospitalization, Disabling)
  Sender: FDA-Public Use
  Company Number: US025579

PATIENT
  Age: 29 Year
  Sex: Female

DRUGS (2)
  1. MODAFINIL [Suspect]
     Indication: HYPERSOMNIA
     Dosage: 200 MG (100 MG, 2 IN 1 D), ORAL
     Route: 048
     Dates: start: 20081101
  2. SINGULAIR [Suspect]
     Indication: ASTHMA

REACTIONS (15)
  - APHONIA [None]
  - ASTHMA [None]
  - BRONCHITIS [None]
  - DRUG INTERACTION [None]
  - GASTROENTERITIS VIRAL [None]
  - HYPOVITAMINOSIS [None]
  - IRRITABILITY [None]
  - MIGRAINE [None]
  - NERVOUSNESS [None]
  - OEDEMA [None]
  - OROPHARYNGEAL PAIN [None]
  - PAIN IN EXTREMITY [None]
  - RESPIRATORY TRACT INFECTION [None]
  - RHINITIS [None]
  - TENSION [None]
